FAERS Safety Report 8711188 (Version 4)
Quarter: 2012Q4

REPORT INFORMATION
  Report Type: 
  Country: DE (occurrence: DE)
  Receive Date: 20120807
  Receipt Date: 20120927
  Transmission Date: 20130627
  Serious: Yes (Death, Other)
  Sender: FDA-Public Use
  Company Number: DE-JNJFOC-20120801354

PATIENT
  Age: 61 Year
  Sex: Male
  Weight: 135 kg

DRUGS (15)
  1. STELARA [Suspect]
     Indication: PSORIASIS
     Dosage: 2 stelara doses in total
     Route: 058
     Dates: start: 20111210, end: 20120117
  2. ENBREL [Suspect]
     Indication: PSORIASIS
     Route: 058
     Dates: start: 201202, end: 201203
  3. ENBREL [Suspect]
     Indication: PSORIASIS
     Route: 058
     Dates: start: 20100805, end: 201111
  4. PANTOZOL [Concomitant]
     Indication: PRODUCT USED FOR UNKNOWN INDICATION
     Dosage: every morning
     Route: 048
  5. ACETYLSALICYLIC ACID [Concomitant]
     Indication: PRODUCT USED FOR UNKNOWN INDICATION
     Dosage: 100 unit unspecified every morning
     Route: 048
  6. ENALAPRIL MALEATE [Concomitant]
     Indication: PRODUCT USED FOR UNKNOWN INDICATION
     Dosage: 20 (unit unspecified) 0.5 every morning and night
     Route: 048
  7. AMLODIPINE [Concomitant]
     Indication: PRODUCT USED FOR UNKNOWN INDICATION
     Dosage: 5 (unit unspecified) every morning and night
     Route: 048
  8. OBSIDAN [Concomitant]
     Indication: PRODUCT USED FOR UNKNOWN INDICATION
     Dosage: once every morning, afternoon and night
     Route: 065
  9. SPIRONOLACTON [Concomitant]
     Indication: PRODUCT USED FOR UNKNOWN INDICATION
     Dosage: every afternoon
     Route: 065
  10. HYDROCHLOROTHIAZIDE [Concomitant]
     Indication: PRODUCT USED FOR UNKNOWN INDICATION
     Dosage: every afternoon
     Route: 065
  11. TOREM [Concomitant]
     Indication: PRODUCT USED FOR UNKNOWN INDICATION
     Dosage: 10 (unit unspecified) every morning
     Route: 065
  12. SIMVASTATIN [Concomitant]
     Indication: PRODUCT USED FOR UNKNOWN INDICATION
     Dosage: every night
     Route: 048
  13. FRAXIPARIN [Concomitant]
     Indication: PRODUCT USED FOR UNKNOWN INDICATION
     Dosage: 0.9 (unit unspecified) every morning and night
     Route: 065
  14. LANTUS [Concomitant]
     Indication: PRODUCT USED FOR UNKNOWN INDICATION
     Dosage: 30 (unit unspecified) for night
     Route: 065
  15. ACTRAPID [Concomitant]
     Indication: PRODUCT USED FOR UNKNOWN INDICATION
     Dosage: 25-20-25 (25 [unit unspecified] every morning and night and 20 [unit unspecified] every afternoon)
     Route: 065

REACTIONS (3)
  - Renal failure [Fatal]
  - Hepatic cancer [Unknown]
  - Disease progression [Unknown]
